FAERS Safety Report 5567763-3 (Version None)
Quarter: 2007Q4

REPORT INFORMATION
  Report Type: 
  Country: None (occurrence: None)
  Receive Date: 20071219
  Receipt Date: 20071217
  Transmission Date: 20080405
  Serious: Yes (Hospitalization)
  Sender: FDA-Public Use
  Company Number: US-BRISTOL-MYERS SQUIBB COMPANY-14017255

PATIENT
  Age: 66 Year
  Sex: Male
  Weight: 76 kg

DRUGS (3)
  1. ERBITUX [Suspect]
     Indication: OROPHARYNGEAL CANCER STAGE UNSPECIFIED
     Dosage: LAST INFUSION IS TAKEN ON 11-DEC-2007
     Dates: start: 20071108
  2. CISPLATIN [Suspect]
     Indication: OROPHARYNGEAL CANCER STAGE UNSPECIFIED
     Dosage: LAST INFUSION TAKEN ON 11-DEC-2007
     Dates: start: 20071115
  3. RADIATION THERAPY [Suspect]
     Indication: OROPHARYNGEAL CANCER STAGE UNSPECIFIED
     Dosage: RT GIVEN 6 DAYS A WEEK FOR 6 WEEKS FOR TOTAL OF 70 GY.

REACTIONS (4)
  - ANOREXIA [None]
  - BLOOD CREATININE INCREASED [None]
  - DEHYDRATION [None]
  - PNEUMONIA [None]
